FAERS Safety Report 17792721 (Version 1)
Quarter: 2020Q2

REPORT INFORMATION
  Report Type: Spontaneous
  Country: NL (occurrence: NL)
  Receive Date: 20200515
  Receipt Date: 20200515
  Transmission Date: 20200714
  Serious: Yes (Other)
  Sender: FDA-Public Use
  Company Number: NL-MYLANLABS-2020M1047294

PATIENT
  Age: 10 Year
  Sex: Male
  Weight: 44 kg

DRUGS (1)
  1. OXYBUTYNIN. [Suspect]
     Active Substance: OXYBUTYNIN CHLORIDE
     Indication: BLADDER IRRITATION
     Dosage: 3 DD 5 MG (5MG, Q8H)
     Dates: start: 202003, end: 20200422

REACTIONS (2)
  - Haematochezia [Recovered/Resolved]
  - Rectal discharge [Recovered/Resolved]

NARRATIVE: CASE EVENT DATE: 20200421
